FAERS Safety Report 13025488 (Version 1)
Quarter: 2016Q4

REPORT INFORMATION
  Report Type: Spontaneous
  Country: FR (occurrence: FR)
  Receive Date: 20161214
  Receipt Date: 20161214
  Transmission Date: 20170207
  Serious: Yes (Death, Hospitalization)
  Sender: FDA-Public Use
  Company Number: FR-ACCORD-046424

PATIENT
  Age: 63 Year
  Sex: Female

DRUGS (2)
  1. AMLODIPINE [Suspect]
     Active Substance: AMLODIPINE BESYLATE
  2. OLMESARTAN [Suspect]
     Active Substance: OLMESARTAN

REACTIONS (5)
  - Shock [Fatal]
  - Gastrointestinal ischaemia [Fatal]
  - Bezoar [Unknown]
  - Skin necrosis [Unknown]
  - Toxicity to various agents [Fatal]
